FAERS Safety Report 14364044 (Version 1)
Quarter: 2018Q1

REPORT INFORMATION
  Report Type: Spontaneous
  Country: CN (occurrence: CN)
  Receive Date: 20180108
  Receipt Date: 20180108
  Transmission Date: 20180509
  Serious: Yes (Hospitalization)
  Sender: FDA-Public Use
  Company Number: CN-BAYER-2017-251044

PATIENT
  Age: 47 Year
  Sex: Male
  Weight: 74 kg

DRUGS (2)
  1. GLUCOBAY [Suspect]
     Active Substance: ACARBOSE
     Indication: HYPERGLYCAEMIA
     Dosage: 50 MG, TID
     Route: 048
     Dates: start: 20170917, end: 20170918
  2. TRAJENTA [Suspect]
     Active Substance: LINAGLIPTIN
     Indication: HYPERGLYCAEMIA
     Dosage: 5 MG, QD
     Route: 048
     Dates: start: 20170917, end: 20170918

REACTIONS (3)
  - Chest discomfort [Recovering/Resolving]
  - Pruritus [Recovering/Resolving]
  - Rash [Recovering/Resolving]

NARRATIVE: CASE EVENT DATE: 20170918
